FAERS Safety Report 20963831 (Version 1)
Quarter: 2022Q2

REPORT INFORMATION
  Report Type: Other
  Country: None (occurrence: US)
  Receive Date: 20220615
  Receipt Date: 20220615
  Transmission Date: 20220721
  Serious: Yes (Disabling)
  Sender: FDA-Public Use
  Company Number: US-Acella Pharmaceuticals, LLC-2129927

PATIENT

DRUGS (2)
  1. NP THYROID [Suspect]
     Active Substance: LEVOTHYROXINE\LIOTHYRONINE
  2. SYNTHROID [Suspect]
     Active Substance: LEVOTHYROXINE SODIUM

REACTIONS (5)
  - Loss of personal independence in daily activities [Unknown]
  - Weight increased [Unknown]
  - Depression [Unknown]
  - Tremor [Unknown]
  - Alopecia [Unknown]
